FAERS Safety Report 9966209 (Version 2)
Quarter: 2014Q1

REPORT INFORMATION
  Report Type: Report from Study
  Country: US (occurrence: US)
  Receive Date: 20140305
  Receipt Date: 20140305
  Transmission Date: 20141002
  Serious: Yes (Hospitalization)
  Sender: FDA-Public Use
  Company Number: US-ABBVIE-13P-163-1097941-00

PATIENT
  Age: 40 Year
  Sex: Female
  Weight: 83.08 kg

DRUGS (8)
  1. HUMIRA [Suspect]
     Indication: COLITIS ULCERATIVE
     Route: 058
     Dates: start: 20130508, end: 20130508
  2. HUMIRA [Suspect]
     Route: 058
  3. JANUVIA [Concomitant]
     Indication: PRODUCT USED FOR UNKNOWN INDICATION
  4. PREDNISONE [Concomitant]
     Indication: PRODUCT USED FOR UNKNOWN INDICATION
     Dosage: TAPER DOSE
     Route: 048
  5. METOFORMIN [Concomitant]
     Indication: DIABETES MELLITUS
     Route: 048
  6. ZOFRAN [Concomitant]
     Indication: PRODUCT USED FOR UNKNOWN INDICATION
  7. PRILOSEC [Concomitant]
     Indication: PRODUCT USED FOR UNKNOWN INDICATION
  8. PERCOCET [Concomitant]
     Indication: PRODUCT USED FOR UNKNOWN INDICATION
     Dosage: 5/325 MG EVERY 4 HOURS
     Route: 048

REACTIONS (2)
  - Colitis ulcerative [Recovering/Resolving]
  - Eye infection [Recovered/Resolved with Sequelae]
